FAERS Safety Report 9887699 (Version 1)
Quarter: 2013Q4

REPORT INFORMATION
  Report Type: Spontaneous
  Country: US (occurrence: None)
  Receive Date: 20131223
  Receipt Date: 20131223
  Transmission Date: 20140711
  Serious: No
  Sender: FDA-Public Use
  Company Number: 220219LEO

PATIENT
  Age: 79 Year
  Sex: Male

DRUGS (4)
  1. PICATO (0.015%, GEL) [Suspect]
     Indication: ACTINIC KERATOSIS
     Route: 061
     Dates: start: 20130120, end: 20130122
  2. NEURONTIN (GABAPENTIN) (600 MG) [Concomitant]
  3. TRIAMTERENE (TRIAMTERENE) [Concomitant]
  4. CORTIZONE (HYDROCORTISONE) [Concomitant]

REACTIONS (5)
  - Application site pain [None]
  - Application site scab [None]
  - Application site erythema [None]
  - Burning sensation [None]
  - Drug administered at inappropriate site [None]
